FAERS Safety Report 10074029 (Version 1)
Quarter: 2014Q2

REPORT INFORMATION
  Report Type: Spontaneous
  Country: US (occurrence: US)
  Receive Date: 20140411
  Receipt Date: 20140411
  Transmission Date: 20141212
  Serious: No
  Sender: FDA-Public Use
  Company Number: US-SA-2013SA132972

PATIENT
  Age: 20 Year
  Sex: Male

DRUGS (1)
  1. ALLEGRA D [Suspect]
     Indication: NASAL CONGESTION
     Dosage: 180/240 MG
     Route: 048
     Dates: start: 20131217, end: 20131218

REACTIONS (4)
  - Insomnia [Recovered/Resolved]
  - Anxiety [Recovered/Resolved]
  - Feeling jittery [Recovered/Resolved]
  - Feeling abnormal [Recovered/Resolved]
